FAERS Safety Report 16182456 (Version 2)
Quarter: 2019Q2

REPORT INFORMATION
  Report Type: Not Available
  Country: HN (occurrence: HN)
  Receive Date: 20190410
  Receipt Date: 20190508
  Transmission Date: 20190711
  Serious: Yes (Hospitalization)
  Sender: FDA-Public Use
  Company Number: HN-ANIPHARMA-2019-HN-000004

PATIENT
  Age: 58 Year
  Sex: Female

DRUGS (1)
  1. ATACAND [Suspect]
     Active Substance: CANDESARTAN CILEXETIL
     Indication: BLOOD PRESSURE MEASUREMENT
     Dosage: 16 MG DAILY
     Route: 048
     Dates: start: 20190325

REACTIONS (3)
  - Nausea [Recovered/Resolved]
  - Asthenia [Recovered/Resolved]
  - Dizziness [Recovered/Resolved]

NARRATIVE: CASE EVENT DATE: 20190329
